FAERS Safety Report 12231406 (Version 8)
Quarter: 2018Q3

REPORT INFORMATION
  Report Type: Spontaneous
  Country: US (occurrence: US)
  Receive Date: 20160401
  Receipt Date: 20180713
  Transmission Date: 20181010
  Serious: Yes (Hospitalization, Other)
  Sender: FDA-Public Use
  Company Number: US-PFIZER INC-2016146462

PATIENT
  Age: 69 Year
  Sex: Female
  Weight: 76.64 kg

DRUGS (1)
  1. XELJANZ [Suspect]
     Active Substance: TOFACITINIB CITRATE
     Indication: RHEUMATOID ARTHRITIS
     Dosage: 5 MG, 2X/DAY
     Route: 048
     Dates: start: 2016, end: 201704

REACTIONS (13)
  - Feeling abnormal [Unknown]
  - Dizziness [Unknown]
  - Oropharyngeal pain [Unknown]
  - Dyspnoea [Unknown]
  - Thrombosis [Recovered/Resolved]
  - Joint swelling [Unknown]
  - Peripheral swelling [Unknown]
  - Immune system disorder [Unknown]
  - Tongue disorder [Unknown]
  - Stress [Not Recovered/Not Resolved]
  - Hypersensitivity [Unknown]
  - Drug dose omission [Unknown]
  - Body height decreased [Unknown]

NARRATIVE: CASE EVENT DATE: 201605
